FAERS Safety Report 4320697-4 (Version None)
Quarter: 2004Q1

REPORT INFORMATION
  Report Type: 
  Country: None (occurrence: None)
  Receive Date: 20040315
  Receipt Date: 20030902
  Transmission Date: 20041129
  Serious: Yes (Hospitalization, Other)
  Sender: FDA-Public Use
  Company Number: USA030843550

PATIENT
  Age: 61 Year
  Sex: Male
  Weight: 123 kg

DRUGS (20)
  1. GEMZAR [Suspect]
     Indication: PLEURAL MESOTHELIOMA
     Dosage: 2000 MG/WEEK
     Dates: start: 20030325, end: 20030624
  2. CARBOPLATIN [Concomitant]
  3. ZANTAC [Concomitant]
  4. AMBIEN (ZOLPIDEM TARTRATE0 [Concomitant]
  5. COMPAZINE [Concomitant]
  6. MEGACE [Concomitant]
  7. ZANAFLEX [Concomitant]
  8. POTASSIUM [Concomitant]
  9. ZOCOR [Concomitant]
  10. LEXAPRO [Concomitant]
  11. LASIX [Concomitant]
  12. NORVASC [Concomitant]
  13. COLCHICINE [Concomitant]
  14. DIOVAN [Concomitant]
  15. LOPRESSOR [Concomitant]
  16. ANZEMET (DOLASETRON MESILATE) [Concomitant]
  17. DECADRON [Concomitant]
  18. PEPCID [Concomitant]
  19. CELEBREX [Concomitant]
  20. LEXAPRO [Concomitant]

REACTIONS (5)
  - ASTHENIA [None]
  - CEREBRAL INFARCTION [None]
  - DYSPNOEA [None]
  - FATIGUE [None]
  - PANCYTOPENIA [None]
